FAERS Safety Report 19084876 (Version 3)
Quarter: 2021Q2

REPORT INFORMATION
  Report Type: Spontaneous
  Country: US (occurrence: US)
  Receive Date: 20210401
  Receipt Date: 20210420
  Transmission Date: 20210717
  Serious: No
  Sender: FDA-Public Use
  Company Number: US-ASCEND THERAPEUTICS US, LLC-2108792

PATIENT
  Age: 55 Year
  Sex: Female
  Weight: 53.64 kg

DRUGS (3)
  1. ESTROGEL [Suspect]
     Active Substance: ESTRADIOL
     Route: 061
     Dates: start: 20200301
  2. ESTROGEL [Suspect]
     Active Substance: ESTRADIOL
     Indication: HOT FLUSH
     Route: 061
     Dates: start: 20200301
  3. ESTROGEL [Suspect]
     Active Substance: ESTRADIOL

REACTIONS (4)
  - Product administered at inappropriate site [None]
  - Product quality issue [None]
  - Therapeutic product effect decreased [None]
  - Product dose omission issue [None]
